FAERS Safety Report 5141560-5 (Version None)
Quarter: 2006Q4

REPORT INFORMATION
  Report Type: 
  Country: None (occurrence: None)
  Receive Date: 20061030
  Receipt Date: 20061030
  Transmission Date: 20070319
  Serious: Yes (Hospitalization)
  Sender: FDA-Public Use
  Company Number: None

PATIENT
  Age: 74 Year
  Sex: Male

DRUGS (5)
  1. SORAFENIB 400 MG P.O. TWICE A DAY [Suspect]
     Dosage: 400 MG P.O. 2 TIMES A DAY
     Route: 048
  2. DIGOXIN [Concomitant]
  3. COUMADIN [Concomitant]
  4. METOPROLOL TARTRATE [Concomitant]
  5. REMERON [Concomitant]

REACTIONS (4)
  - DYSPNOEA [None]
  - HEART RATE INCREASED [None]
  - PNEUMONIA [None]
  - PULMONARY OEDEMA [None]
